FAERS Safety Report 22260801 (Version 1)
Quarter: 2023Q2

REPORT INFORMATION
  Report Type: Spontaneous
  Country: US (occurrence: None)
  Receive Date: 20230427
  Receipt Date: 20230427
  Transmission Date: 20230721
  Serious: Yes (Hospitalization)
  Sender: FDA-Public Use
  Company Number: None

PATIENT
  Age: 47 Year
  Sex: Female
  Weight: 94.3 kg

DRUGS (6)
  1. INFLECTRA [Suspect]
     Active Substance: INFLIXIMAB-DYYB
     Indication: Crohn^s disease
     Dosage: OTHER FREQUENCY : WEEK 6 THEN Q8WEEK;?
     Route: 042
     Dates: start: 20230313, end: 20230424
  2. SODIUM CHLORIDE [Suspect]
     Active Substance: SODIUM CHLORIDE
     Indication: Crohn^s disease
     Dosage: OTHER FREQUENCY : WEEK 6 THEN Q8WEEK;?
     Route: 042
  3. diphenhydramine 25mg Cap [Concomitant]
     Dates: start: 20230313, end: 20230424
  4. acetaminophen 650mg Tab [Concomitant]
     Dates: start: 20230313, end: 20230424
  5. SODIUM CHLORIDE [Concomitant]
     Active Substance: SODIUM CHLORIDE
     Dates: start: 20230313, end: 20230424
  6. sodium chloride 0.9% 500mL [Concomitant]
     Dates: start: 20230424, end: 20230424

REACTIONS (7)
  - Infusion related reaction [None]
  - Headache [None]
  - Nausea [None]
  - Flushing [None]
  - Pruritus [None]
  - Cough [None]
  - Throat irritation [None]

NARRATIVE: CASE EVENT DATE: 20230424
